FAERS Safety Report 25140632 (Version 1)
Quarter: 2025Q1

REPORT INFORMATION
  Report Type: Spontaneous
  Country: PL (occurrence: PL)
  Receive Date: 20250331
  Receipt Date: 20250331
  Transmission Date: 20250409
  Serious: Yes (Death, Congenital Anomaly)
  Sender: ROCHE
  Company Number: PL-ROCHE-10000244459

PATIENT
  Age: 0 Hour

DRUGS (1)
  1. OCREVUS [Suspect]
     Active Substance: OCRELIZUMAB
     Indication: Product used for unknown indication
     Route: 064
     Dates: start: 20220510

REACTIONS (5)
  - Foetal exposure during pregnancy [Unknown]
  - Premature baby [Unknown]
  - Neonatal asphyxia [Unknown]
  - Neonatal respiratory failure [Fatal]
  - Circulatory failure neonatal [Fatal]

NARRATIVE: CASE EVENT DATE: 20240716
